FAERS Safety Report 19630036 (Version 2)
Quarter: 2022Q4

REPORT INFORMATION
  Report Type: Other
  Country: US (occurrence: None)
  Receive Date: 20210728
  Receipt Date: 20221005
  Transmission Date: 20230113
  Serious: Yes (Hospitalization, Other)
  Sender: FDA-Public Use
  Company Number: US-ROCHE-2792924

PATIENT
  Age: 65 Year
  Sex: Male
  Weight: 72.640 kg

DRUGS (15)
  1. OCREVUS [Suspect]
     Active Substance: OCRELIZUMAB
     Indication: Secondary progressive multiple sclerosis
     Dosage: DATE OF TREATMENT 20-JUL-2020, 14-JAN-2020, 31-MAY-2019, 01-JUN-2018, 30-NOV-2018, 29-NOV-2017, 13-D
     Route: 042
     Dates: start: 20171129, end: 20200720
  2. EMEND [Concomitant]
     Active Substance: APREPITANT
     Indication: Nausea
     Dosage: WITH CHEMOTHERAPY INFUSION
     Route: 042
     Dates: start: 20201215, end: 20210525
  3. EMEND [Concomitant]
     Active Substance: APREPITANT
     Indication: Vomiting
  4. PROCHLORPERAZINE [Concomitant]
     Active Substance: PROCHLORPERAZINE
     Indication: Vomiting
     Dosage: EVERY 6 HOURS
     Route: 048
     Dates: start: 20201215
  5. PROCHLORPERAZINE [Concomitant]
     Active Substance: PROCHLORPERAZINE
     Indication: Nausea
  6. ELIQUIS [Concomitant]
     Active Substance: APIXABAN
     Indication: Thrombosis
     Route: 048
     Dates: start: 202011
  7. RITALIN [Concomitant]
     Active Substance: METHYLPHENIDATE HYDROCHLORIDE
     Route: 048
  8. BACLOFEN [Concomitant]
     Active Substance: BACLOFEN
     Route: 048
  9. TRAZODONE [Concomitant]
     Active Substance: TRAZODONE HYDROCHLORIDE
     Dosage: AT NIGHT
     Route: 048
  10. GABAPENTIN [Concomitant]
     Active Substance: GABAPENTIN
     Route: 048
  11. TRINTELLIX [Concomitant]
     Active Substance: VORTIOXETINE HYDROBROMIDE
     Route: 048
     Dates: start: 2015, end: 202010
  12. TRINTELLIX [Concomitant]
     Active Substance: VORTIOXETINE HYDROBROMIDE
     Route: 048
  13. TAMSULOSIN HYDROCHLORIDE [Concomitant]
     Active Substance: TAMSULOSIN HYDROCHLORIDE
     Indication: Dysuria
     Route: 048
     Dates: start: 2019
  14. ROCEPHIN [Concomitant]
     Active Substance: CEFTRIAXONE SODIUM
  15. MECLIZINE [Concomitant]
     Active Substance: MECLIZINE HYDROCHLORIDE
     Indication: Vertigo
     Route: 048

REACTIONS (15)
  - Colon cancer [Unknown]
  - Intestinal perforation [Recovered/Resolved]
  - Large intestine perforation [Recovered/Resolved]
  - Pneumonia [Recovered/Resolved]
  - Thrombosis [Unknown]
  - Bronchitis [Unknown]
  - Nausea [Not Recovered/Not Resolved]
  - Vomiting [Recovered/Resolved]
  - Asthenia [Not Recovered/Not Resolved]
  - Oral infection [Recovered/Resolved]
  - Pain [Recovered/Resolved]
  - Localised infection [Recovered/Resolved]
  - Diarrhoea [Recovered/Resolved]
  - Polyp [Unknown]
  - Vertigo [Not Recovered/Not Resolved]

NARRATIVE: CASE EVENT DATE: 20201001
